FAERS Safety Report 17314926 (Version 5)
Quarter: 2020Q3

REPORT INFORMATION
  Report Type: Spontaneous
  Country: US (occurrence: US)
  Receive Date: 20200124
  Receipt Date: 20200814
  Transmission Date: 20201102
  Serious: Yes (Hospitalization)
  Sender: FDA-Public Use
  Company Number: US-PCCINC-2019-PEL-000265

PATIENT

DRUGS (4)
  1. KEFLEX [Concomitant]
     Active Substance: CEPHALEXIN
     Indication: ANTIBIOTIC THERAPY
     Dosage: 25 MILLIGRAM, QD
     Route: 048
  2. BACLOFEN. [Concomitant]
     Active Substance: BACLOFEN
     Indication: PRODUCT USED FOR UNKNOWN INDICATION
     Dosage: UNK
     Route: 048
  3. GABLOFEN [Suspect]
     Active Substance: BACLOFEN
     Indication: MUSCLE SPASTICITY
     Dosage: 200 MICROGRAM PER DAY
     Route: 037
  4. GABLOFEN [Suspect]
     Active Substance: BACLOFEN
     Dosage: 100 MICROGRAM, PER DAY
     Route: 037

REACTIONS (15)
  - Erythema [Recovering/Resolving]
  - Wound dehiscence [Not Recovered/Not Resolved]
  - Incision site discharge [Recovering/Resolving]
  - Incision site discharge [Unknown]
  - Tachycardia [Not Recovered/Not Resolved]
  - Irritability [Recovered/Resolved]
  - Musculoskeletal stiffness [Recovered/Resolved]
  - Incision site discharge [Not Recovered/Not Resolved]
  - Purulent discharge [Not Recovered/Not Resolved]
  - Purulent discharge [Unknown]
  - Pyrexia [Not Recovered/Not Resolved]
  - Hypertonia [Recovered/Resolved]
  - Device occlusion [Recovered/Resolved]
  - Implant site infection [Recovered/Resolved]
  - Implant site extravasation [Not Recovered/Not Resolved]

NARRATIVE: CASE EVENT DATE: 20180619
